FAERS Safety Report 16186674 (Version 1)
Quarter: 2019Q2

REPORT INFORMATION
  Report Type: Spontaneous
  Country: IL (occurrence: IL)
  Receive Date: 20190411
  Receipt Date: 20190411
  Transmission Date: 20190711
  Serious: Yes (Death, Hospitalization)
  Sender: FDA-Public Use
  Company Number: PHHY2019IL081618

PATIENT
  Age: 54 Year
  Sex: Male

DRUGS (3)
  1. TRAMETINIB [Suspect]
     Active Substance: TRAMETINIB
     Indication: LUNG ADENOCARCINOMA
     Route: 065
  2. DABRAFENIB [Suspect]
     Active Substance: DABRAFENIB
     Indication: LUNG ADENOCARCINOMA
     Route: 065
  3. ALLOPURINOL. [Concomitant]
     Active Substance: ALLOPURINOL
     Indication: PARANEOPLASTIC SYNDROME
     Route: 065

REACTIONS (6)
  - Lung adenocarcinoma [Fatal]
  - Dyspnoea [Fatal]
  - Product use in unapproved indication [Unknown]
  - White blood cell count increased [Fatal]
  - Eosinophil count increased [Fatal]
  - Malignant neoplasm progression [Fatal]
